FAERS Safety Report 7510437-X (Version None)
Quarter: 2011Q2

REPORT INFORMATION
  Report Type: 
  Country: None (occurrence: None)
  Receive Date: 20110527
  Receipt Date: 20110523
  Transmission Date: 20111010
  Serious: Yes (Death, Other)
  Sender: FDA-Public Use
  Company Number: US-ELI_LILLY_AND_COMPANY-US201102003822

PATIENT
  Sex: Female
  Weight: 63.49 kg

DRUGS (11)
  1. NTZ [Concomitant]
     Dosage: UNK, UNKNOWN
     Route: 065
  2. MIRALAX [Concomitant]
     Dosage: UNK, UNKNOWN
     Route: 065
  3. EFFIENT [Suspect]
     Dosage: 10 MG, DAILY (1/D)
     Route: 048
  4. ZESTORETIC [Concomitant]
  5. XANAX [Concomitant]
     Dosage: UNK, UNKNOWN
     Route: 065
  6. ASPIRIN [Concomitant]
  7. ANGIOMAX [Concomitant]
  8. EFFIENT [Suspect]
     Indication: STENT PLACEMENT
     Dosage: 60 MG, LOADING DOSE
     Dates: start: 20110202
  9. CHOLECALCIFEROL [Concomitant]
     Dosage: UNK, UNKNOWN
     Route: 065
  10. ATENOLOL [Concomitant]
     Dosage: UNK, UNKNOWN
     Route: 065
  11. LIPITOR [Concomitant]

REACTIONS (5)
  - SHOCK HAEMORRHAGIC [None]
  - FALL [None]
  - RETROPERITONEAL HAEMORRHAGE [None]
  - PUNCTURE SITE HAEMORRHAGE [None]
  - ABDOMINAL PAIN UPPER [None]
